FAERS Safety Report 5211725-2 (Version None)
Quarter: 2007Q1

REPORT INFORMATION
  Report Type: 
  Country: None (occurrence: None)
  Receive Date: 20070118
  Receipt Date: 20070109
  Transmission Date: 20070707
  Serious: Yes (Hospitalization, Other)
  Sender: FDA-Public Use
  Company Number: PHBS2007BR00882

PATIENT
  Age: 88 Year
  Sex: Female
  Weight: 76 kg

DRUGS (5)
  1. HYDERGINE [Suspect]
     Indication: AMNESIA
     Dosage: 1 DF, QHS
     Route: 048
     Dates: end: 20061101
  2. METFORMIN [Concomitant]
     Dosage: UNK, UNK
     Route: 065
     Dates: end: 20061101
  3. DAONIL [Concomitant]
     Dosage: UNK, UNK
     Route: 065
     Dates: end: 20061101
  4. OLCADIL [Suspect]
     Indication: ANXIETY
     Route: 048
  5. OLCADIL [Suspect]
     Dosage: 1 DF, QHS
     Route: 048
     Dates: end: 20061101

REACTIONS (10)
  - AGITATION [None]
  - BLOOD GLUCOSE INCREASED [None]
  - DIABETES MELLITUS [None]
  - INSOMNIA [None]
  - LETHARGY [None]
  - MOBILITY DECREASED [None]
  - MULTIPLE SCLEROSIS [None]
  - PROSTRATION [None]
  - SOMNOLENCE [None]
  - SPEECH DISORDER [None]
